FAERS Safety Report 9283310 (Version 1)
Quarter: 2013Q2

REPORT INFORMATION
  Report Type: Spontaneous
  Country: NL (occurrence: None)
  Receive Date: 20130506
  Receipt Date: 20130506
  Transmission Date: 20140414
  Serious: Yes (Hospitalization, Other)
  Sender: FDA-Public Use
  Company Number: AUR-APL-2013-03610

PATIENT
  Age: 43 Year
  Sex: Female

DRUGS (2)
  1. OLANZAPINE (OLANZAPINE) [Suspect]
     Indication: PSYCHOTIC DISORDER
  2. CLOMIPRAMINE (CLOMIPRAMINE) [Suspect]
     Indication: PSYCHOTIC DISORDER

REACTIONS (12)
  - Gastric dilatation [None]
  - Impaired gastric emptying [None]
  - General physical health deterioration [None]
  - Shock [None]
  - Gastrointestinal necrosis [None]
  - Gastric perforation [None]
  - Continuous haemodiafiltration [None]
  - Systemic candida [None]
  - Sepsis [None]
  - Gastrointestinal fistula [None]
  - Peritonitis [None]
  - Gastrointestinal anastomotic leak [None]
